FAERS Safety Report 8925034 (Version 2)
Quarter: 2013Q2

REPORT INFORMATION
  Report Type: Spontaneous
  Country: US (occurrence: US)
  Receive Date: 20121126
  Receipt Date: 20130417
  Transmission Date: 20140414
  Serious: Yes (Hospitalization)
  Sender: FDA-Public Use
  Company Number: US-BAYER-2012-121322

PATIENT
  Age: 26 Year
  Sex: Female
  Weight: 55.78 kg

DRUGS (7)
  1. YASMIN [Suspect]
     Indication: ACNE
     Dosage: UNK
     Dates: start: 200607, end: 201002
  2. YASMIN [Suspect]
     Indication: CONTRACEPTION
  3. YAZ [Suspect]
     Indication: ACNE
     Dosage: UNK
     Dates: start: 200607, end: 201002
  4. OCELLA [Suspect]
     Indication: ACNE
     Dosage: UNK
     Dates: start: 200607, end: 201002
  5. OXYCONTIN [Concomitant]
  6. OXYCODONE [Concomitant]
  7. LEVAQUIN [Concomitant]
     Indication: LOBAR PNEUMONIA

REACTIONS (9)
  - Pulmonary embolism [None]
  - Pulmonary infarction [None]
  - Deep vein thrombosis [None]
  - Injury [None]
  - Chest pain [None]
  - Pain in extremity [None]
  - Local swelling [None]
  - Back pain [None]
  - Pain [None]
